FAERS Safety Report 6920809-X (Version None)
Quarter: 2010Q3

REPORT INFORMATION
  Report Type: 
  Country: None (occurrence: None)
  Receive Date: 20100804
  Receipt Date: 20091020
  Transmission Date: 20110219
  Serious: No
  Sender: FDA-Public Use
  Company Number: 2009-4352

PATIENT
  Age: 43 Year
  Sex: Female
  Weight: 59 kg

DRUGS (3)
  1. SOMATULINE DEPOT [Suspect]
     Indication: ACROMEGALY
     Dosage: (90 MG, 1 IN 1 M), PARENTERAL
     Route: 051
     Dates: start: 20090401
  2. FISH OIL (FISH OIL) [Concomitant]
  3. MAGNESIUM (FISH OIL) [Concomitant]

REACTIONS (6)
  - ABDOMINAL PAIN [None]
  - ALOPECIA [None]
  - CONSTIPATION [None]
  - DIARRHOEA [None]
  - FAECES DISCOLOURED [None]
  - FAECES HARD [None]
